FAERS Safety Report 24904799 (Version 1)
Quarter: 2025Q1

REPORT INFORMATION
  Report Type: Spontaneous
  Country: US (occurrence: US)
  Receive Date: 20250130
  Receipt Date: 20250130
  Transmission Date: 20250409
  Serious: No
  Sender: AVERITAS
  Company Number: US-GRUNENTHAL-2025-101351

PATIENT
  Sex: Male

DRUGS (1)
  1. QUTENZA [Suspect]
     Active Substance: CAPSAICIN
     Indication: Post herpetic neuralgia
     Route: 061
     Dates: start: 20250117, end: 20250117

REACTIONS (2)
  - Application site erythema [Unknown]
  - Application site pain [Unknown]

NARRATIVE: CASE EVENT DATE: 20250117
